FAERS Safety Report 10024296 (Version 2)
Quarter: 2015Q1

REPORT INFORMATION
  Report Type: Spontaneous
  Country: SE (occurrence: SE)
  Receive Date: 20140320
  Receipt Date: 20150309
  Transmission Date: 20150720
  Serious: Yes (Other)
  Sender: FDA-Public Use
  Company Number: SE-ABBVIE-14P-150-1214503-00

PATIENT
  Age: 73 Year
  Sex: Male

DRUGS (1)
  1. ERGENYL RETARD [Suspect]
     Active Substance: VALPROIC ACID
     Indication: EPILEPSY
     Dosage: EXTENDED RELEASE, 10.1 YEARS
     Route: 048
     Dates: start: 20030310, end: 20130415

REACTIONS (5)
  - Ataxia [Recovered/Resolved with Sequelae]
  - Essential tremor [Recovered/Resolved with Sequelae]
  - Cognitive disorder [Recovered/Resolved with Sequelae]
  - Urinary incontinence [Recovered/Resolved with Sequelae]
  - Bruxism [Recovered/Resolved with Sequelae]

NARRATIVE: CASE EVENT DATE: 2010
